FAERS Safety Report 12158244 (Version 1)
Quarter: 2016Q1

REPORT INFORMATION
  Report Type: Spontaneous
  Country: US (occurrence: US)
  Receive Date: 20160308
  Receipt Date: 20160308
  Transmission Date: 20160526
  Serious: No
  Sender: FDA-Public Use
  Company Number: US-JNJFOC-20150113296

PATIENT
  Age: 62 Year
  Sex: Female

DRUGS (11)
  1. CYMBALTA [Concomitant]
     Active Substance: DULOXETINE HYDROCHLORIDE
  2. RESTORIL [Concomitant]
     Active Substance: TEMAZEPAM
  3. MIRALAX [Concomitant]
     Active Substance: POLYETHYLENE GLYCOL 3350
  4. COMPAZINE [Concomitant]
     Active Substance: PROCHLORPERAZINE MALEATE
  5. BONIVA [Concomitant]
     Active Substance: IBANDRONATE SODIUM
  6. NEURONTIN [Concomitant]
     Active Substance: GABAPENTIN
  7. PRILOSEC [Concomitant]
     Active Substance: OMEPRAZOLE MAGNESIUM
  8. PLAQUENIL [Concomitant]
     Active Substance: HYDROXYCHLOROQUINE SULFATE
  9. IMBRUVICA [Suspect]
     Active Substance: IBRUTINIB
     Indication: WALDENSTROM^S MACROGLOBULINAEMIA
     Route: 048
     Dates: start: 20141118, end: 2014
  10. VITAMIN B [Concomitant]
     Active Substance: VITAMIN B
  11. OSCAL NOS [Concomitant]

REACTIONS (2)
  - Fistula [Unknown]
  - Localised infection [Recovered/Resolved]

NARRATIVE: CASE EVENT DATE: 20141223
